FAERS Safety Report 17167718 (Version 1)
Quarter: 2019Q4

REPORT INFORMATION
  Report Type: Spontaneous
  Country: US (occurrence: US)
  Receive Date: 20191125
  Receipt Date: 20191125
  Transmission Date: 20200122
  Serious: No
  Sender: FDA-Public Use
  Company Number: None

PATIENT
  Age: 57 Year
  Sex: Male

DRUGS (1)
  1. TALTZ [Suspect]
     Active Substance: IXEKIZUMAB
     Indication: PSORIATIC ARTHROPATHY
     Dosage: ?          OTHER FREQUENCY:ONCE AT WEEK 0 ;?
     Route: 058
     Dates: start: 20191107

REACTIONS (7)
  - Fatigue [None]
  - Eye swelling [None]
  - Arthralgia [None]
  - Myalgia [None]
  - Dry eye [None]
  - Poor quality sleep [None]
  - Ocular hyperaemia [None]

NARRATIVE: CASE EVENT DATE: 20191107
